FAERS Safety Report 16466065 (Version 1)
Quarter: 2019Q2

REPORT INFORMATION
  Report Type: Other
  Country: US (occurrence: US)
  Receive Date: 20190621
  Receipt Date: 20190621
  Transmission Date: 20190711
  Serious: No
  Sender: FDA-Public Use
  Company Number: US-ACORDA-ACO_158475_2019

PATIENT
  Sex: Male

DRUGS (1)
  1. INBRIJA [Suspect]
     Active Substance: LEVODOPA
     Indication: PARKINSON^S DISEASE
     Dosage: CONTENTS OF 2 CAPS (84 MILLIGRAM TOTAL) AS DIRECTED FIVE TIMES DAILY AS NEEDED

REACTIONS (3)
  - Incorrect dose administered [Unknown]
  - Dyspnoea [Unknown]
  - Cough [Unknown]
